FAERS Safety Report 4401050-1 (Version None)
Quarter: 2004Q3

REPORT INFORMATION
  Report Type: 
  Country: None (occurrence: None)
  Receive Date: 20040907
  Receipt Date: 20031008
  Transmission Date: 20050211
  Serious: No
  Sender: FDA-Public Use
  Company Number: US-BRISTOL-MYERS SQUIBB COMPANY-12405742

PATIENT
  Age: 80 Year
  Sex: Female
  Weight: 68 kg

DRUGS (9)
  1. COUMADIN [Suspect]
     Indication: HEART VALVE REPLACEMENT
     Dosage: DOSE INCREASED TO 2.5 MG, 4 TABLETS ONCE DAILY; DRUG TAKEN 7-8 YEARS.
     Route: 048
  2. PLAVIX [Concomitant]
     Route: 048
  3. ZOCOR [Concomitant]
  4. WELCHOL [Concomitant]
  5. NEXIUM [Concomitant]
  6. TIAZAC [Concomitant]
  7. LODINE [Concomitant]
  8. DIOVAN [Concomitant]
  9. FRAGMIN [Concomitant]
     Route: 051

REACTIONS (1)
  - BLOOD VISCOSITY INCREASED [None]
